FAERS Safety Report 6975041-0 (Version None)
Quarter: 2010Q3

REPORT INFORMATION
  Report Type: 
  Country: None (occurrence: None)
  Receive Date: 20100910
  Receipt Date: 20090204
  Transmission Date: 20110219
  Serious: No
  Sender: FDA-Public Use
  Company Number: US-WYE-H08092109

PATIENT
  Sex: Female
  Weight: 77.18 kg

DRUGS (5)
  1. PRISTIQ [Suspect]
     Indication: DEPRESSION
     Route: 048
     Dates: start: 20090201
  2. LEVOTHYROXINE SODIUM [Concomitant]
  3. ADVAIR DISKUS 100/50 [Concomitant]
  4. NORVASC [Concomitant]
  5. COZAAR [Concomitant]

REACTIONS (2)
  - ASTHENIA [None]
  - FATIGUE [None]
